FAERS Safety Report 15682577 (Version 3)
Quarter: 2019Q1

REPORT INFORMATION
  Report Type: Report from Study
  Country: US (occurrence: US)
  Receive Date: 20181203
  Receipt Date: 20190102
  Transmission Date: 20190417
  Serious: Yes (Hospitalization)
  Sender: FDA-Public Use
  Company Number: US-ACTELION-A-US2018-180812

PATIENT
  Age: 63 Year
  Sex: Male
  Weight: 93.88 kg

DRUGS (3)
  1. SILDENAFIL. [Concomitant]
     Active Substance: SILDENAFIL
  2. OPSUMIT [Suspect]
     Active Substance: MACITENTAN
     Indication: PULMONARY HYPERTENSION
     Dosage: 10 MG, QD
     Route: 048
     Dates: start: 20180928
  3. OPSUMIT [Suspect]
     Active Substance: MACITENTAN
     Indication: PULMONARY FIBROSIS

REACTIONS (6)
  - Pulmonary oedema [Unknown]
  - Oxygen saturation increased [Unknown]
  - Dyspnoea exertional [Unknown]
  - Chest pain [Not Recovered/Not Resolved]
  - Pneumonia [Recovering/Resolving]
  - Oxygen saturation decreased [Recovering/Resolving]

NARRATIVE: CASE EVENT DATE: 2018
